FAERS Safety Report 9022458 (Version 1)
Quarter: 2013Q1

REPORT INFORMATION
  Report Type: Spontaneous
  Country: US (occurrence: US)
  Receive Date: 20130118
  Receipt Date: 20130118
  Transmission Date: 20140127
  Serious: Yes (Death, Hospitalization, Other)
  Sender: FDA-Public Use
  Company Number: US-PAR PHARMACEUTICAL, INC-2013SCPR005054

PATIENT
  Age: 53 Year
  Sex: Female

DRUGS (3)
  1. CLONAZEPAM [Suspect]
     Indication: PRODUCT USED FOR UNKNOWN INDICATION
     Dosage: UNK, INGST+UNK
  2. COPPER\NITRIC ACID\SELENIUM DIOXIDE [Suspect]
     Indication: PRODUCT USED FOR UNKNOWN INDICATION
     Dosage: UNK, 6-7 OUNCES, INGST+UNK
  3. COCAINE [Suspect]
     Indication: PRODUCT USED FOR UNKNOWN INDICATION
     Dosage: UNK, INGST+UNK

REACTIONS (7)
  - Death [Fatal]
  - Completed suicide [Fatal]
  - Chemical injury [Fatal]
  - Cardiac arrest [Fatal]
  - Haematemesis [Unknown]
  - Throat irritation [Unknown]
  - Abdominal pain [Unknown]
